FAERS Safety Report 6833391-2 (Version None)
Quarter: 2010Q3

REPORT INFORMATION
  Report Type: 
  Country: None (occurrence: None)
  Receive Date: 20100712
  Receipt Date: 20070320
  Transmission Date: 20110219
  Serious: No
  Sender: FDA-Public Use
  Company Number: US-PFIZER INC-2007022977

PATIENT
  Sex: Female
  Weight: 68.04 kg

DRUGS (3)
  1. CHANTIX [Suspect]
     Indication: SMOKING CESSATION THERAPY
     Route: 048
     Dates: start: 20070318
  2. ULTRAM [Concomitant]
     Indication: FIBROMYALGIA
     Route: 048
  3. ACETAMINOPHEN, ASPIRIN AND CAFFEINE [Concomitant]
     Indication: FIBROMYALGIA
     Route: 048

REACTIONS (3)
  - COUGH [None]
  - MUSCLE SPASMS [None]
  - PARAESTHESIA [None]
